FAERS Safety Report 8213374-0 (Version None)
Quarter: 2012Q1

REPORT INFORMATION
  Report Type: 
  Country: None (occurrence: None)
  Receive Date: 20120315
  Receipt Date: 20120301
  Transmission Date: 20120608
  Serious: Yes (Other)
  Sender: FDA-Public Use
  Company Number: DE-ROCHE-1021075

PATIENT
  Age: 51 Year
  Sex: Male
  Weight: 92 kg

DRUGS (15)
  1. AZATHIOPRINE [Suspect]
     Indication: PEMPHIGUS
     Route: 048
     Dates: start: 20100810, end: 20100831
  2. BISOPROLOL FUMARATE [Concomitant]
     Indication: HYPERTENSION
     Route: 048
     Dates: start: 20100810
  3. ERGOCALCIFEROL [Concomitant]
     Indication: PROPHYLAXIS
     Dosage: 1000 IE
     Dates: start: 20100810, end: 20100813
  4. CETIRIZINE [Concomitant]
     Indication: PROPHYLAXIS
     Route: 048
     Dates: start: 20100813, end: 20100813
  5. FRAGMIN P FORTE [Concomitant]
     Indication: PROPHYLAXIS
     Dates: start: 20100811, end: 20100813
  6. MABTHERA [Suspect]
     Dates: start: 20100903, end: 20100903
  7. AZATHIOPRINE [Suspect]
     Route: 048
     Dates: start: 20100901, end: 20100920
  8. AZATHIOPRINE [Suspect]
     Route: 048
     Dates: start: 20100924
  9. ACETAMINOPHEN [Concomitant]
     Indication: PROPHYLAXIS
     Route: 048
     Dates: start: 20100813, end: 20100813
  10. CETIRIZINE [Concomitant]
     Route: 048
     Dates: start: 20100903, end: 20100903
  11. MABTHERA [Suspect]
     Indication: PEMPHIGUS
     Route: 042
     Dates: start: 20100813, end: 20100813
  12. PANTOPRAZOLE [Concomitant]
     Indication: PROPHYLAXIS
     Route: 048
     Dates: start: 20100810, end: 20100813
  13. ACETAMINOPHEN [Concomitant]
     Route: 048
     Dates: start: 20100903, end: 20100903
  14. DEXAMETHASONE [Concomitant]
     Indication: PEMPHIGUS
     Route: 042
     Dates: start: 20100811, end: 20100913
  15. DEXAMETHASONE [Concomitant]
     Route: 042
     Dates: start: 20100901, end: 20100903

REACTIONS (1)
  - HEPATIC ENZYME INCREASED [None]
